FAERS Safety Report 5635583-7 (Version None)
Quarter: 2008Q1

REPORT INFORMATION
  Report Type: 
  Country: None (occurrence: None)
  Receive Date: 20080222
  Receipt Date: 20080213
  Transmission Date: 20080703
  Serious: Yes (Disabling)
  Sender: FDA-Public Use
  Company Number: JP-PFIZER INC-2008015402

PATIENT
  Age: 71 Year
  Sex: Female

DRUGS (2)
  1. LIPITOR [Suspect]
     Route: 048
     Dates: start: 20030101, end: 20071101
  2. CORTRIL [Concomitant]
     Route: 048
     Dates: start: 20030101, end: 20071101

REACTIONS (1)
  - DYSPHONIA [None]
